FAERS Safety Report 10273008 (Version 1)
Quarter: 2014Q2

REPORT INFORMATION
  Report Type: Spontaneous
  Country: US (occurrence: None)
  Receive Date: 20140627
  Receipt Date: 20140627
  Transmission Date: 20141212
  Serious: Yes (Hospitalization)
  Sender: FDA-Public Use
  Company Number: None

PATIENT
  Age: 67 Year
  Sex: Male
  Weight: 132.6 kg

DRUGS (2)
  1. WARFARIN [Suspect]
     Indication: ATRIAL FIBRILLATION
     Route: 048
     Dates: start: 19990115, end: 20140623
  2. ASPIRIN [Suspect]
     Route: 048

REACTIONS (3)
  - Gastrointestinal haemorrhage [None]
  - Gastritis erosive [None]
  - Gastric haemorrhage [None]
